FAERS Safety Report 15759587 (Version 1)
Quarter: 2018Q4

REPORT INFORMATION
  Report Type: Spontaneous
  Country: ES (occurrence: ES)
  Receive Date: 20181226
  Receipt Date: 20181226
  Transmission Date: 20190205
  Serious: Yes (Hospitalization, Other)
  Sender: FDA-Public Use
  Company Number: ES-ACCORD-097610

PATIENT
  Age: 80 Year
  Sex: Female

DRUGS (9)
  1. LEVEMIR [Concomitant]
     Active Substance: INSULIN DETEMIR
     Dosage: FLEXPEN 100 UNITS/ML
     Route: 058
  2. TRYPTIZOL [Concomitant]
     Active Substance: AMITRIPTYLINE HYDROCHLORIDE
     Dosage: 10 MG FILM-COATED TABLETS, 24 TABLETS
     Route: 048
  3. CLOPIDOGREL [Suspect]
     Active Substance: CLOPIDOGREL BISULFATE
     Indication: ISCHAEMIC CARDIOMYOPATHY
     Route: 048
     Dates: start: 2010, end: 20160425
  4. BELOKEN [Concomitant]
     Active Substance: METOPROLOL TARTRATE
     Dosage: 100?MG?TABLETS, 40 TABLETS
     Route: 048
  5. CLEXANE [Interacting]
     Active Substance: ENOXAPARIN SODIUM
     Indication: PRODUCT USED FOR UNKNOWN INDICATION
     Dosage: 40?MG?(4.000?UI)?INJECTABLE SOLUTION IN AMPOULE, 10 AMPOULES OF 0.4 ML
     Route: 058
     Dates: start: 20160422, end: 20160425
  6. ADIRO [Interacting]
     Active Substance: ASPIRIN
     Indication: ISCHAEMIC CARDIOMYOPATHY
     Dosage: EFG, 30 TABLETS
     Route: 048
     Dates: start: 2010
  7. ANAGASTRA [Concomitant]
     Active Substance: PANTOPRAZOLE SODIUM
     Dosage: 14 TABLETS
     Route: 048
  8. OSVAREN [Concomitant]
     Active Substance: CALCIUM ACETATE\MAGNESIUM CARBONATE
     Dosage: 435 MG / 235 MG FILM-COATED TABLETS, 180 TABLETS
     Route: 048
  9. INEGY [Concomitant]
     Active Substance: EZETIMIBE\SIMVASTATIN
     Dosage: 10?MG/20?MG?TABLETS, 100 TABLETS
     Route: 048

REACTIONS (4)
  - Syncope [Recovered/Resolved]
  - Hypotension [Recovered/Resolved]
  - Drug interaction [Unknown]
  - Lower gastrointestinal haemorrhage [Recovered/Resolved]

NARRATIVE: CASE EVENT DATE: 20160425
